FAERS Safety Report 22207345 (Version 1)
Quarter: 2023Q2

REPORT INFORMATION
  Report Type: Spontaneous
  Country: CN (occurrence: CN)
  Receive Date: 20230413
  Receipt Date: 20230413
  Transmission Date: 20230721
  Serious: Yes (Other)
  Sender: FDA-Public Use
  Company Number: CN-PFIZER INC-PV202300066754

PATIENT
  Age: 3 Year
  Sex: Male
  Weight: 15.2 kg

DRUGS (9)
  1. CYTARABINE [Suspect]
     Active Substance: CYTARABINE
     Indication: Acute lymphocytic leukaemia
     Dosage: 47.4 MG (75 MG/M2), CYCLIC, ON DAYS 3-6 AND DAYS 10-13
     Route: 041
     Dates: start: 20230224, end: 20230227
  2. CYTARABINE [Suspect]
     Active Substance: CYTARABINE
     Dosage: 36 MG
     Route: 037
  3. METHOTREXATE SODIUM [Suspect]
     Active Substance: METHOTREXATE SODIUM
     Indication: Acute lymphocytic leukaemia
     Dosage: 12 MG, CYCLIC, TWICE ON DAYS 3 AND 10
     Route: 037
  4. CYCLOPHOSPHAMIDE [Suspect]
     Active Substance: CYCLOPHOSPHAMIDE
     Indication: Acute lymphocytic leukaemia
     Dosage: 0.63 MG (1 G/M2), CYCLIC, ON D1 WITHIN 1 H
  5. MESNA [Suspect]
     Active Substance: MESNA
     Indication: Acute lymphocytic leukaemia
     Dosage: 250 MG (400 MG/M2), CYCLIC, AT 0, 4 AND 8 HOURS WHEN CYCLOPHOSPHAMIDE IS INJECTED
  6. MERCAPTOPURINE [Suspect]
     Active Substance: MERCAPTOPURINE
     Indication: Acute lymphocytic leukaemia
     Dosage: 32 MG (50 MG/M2), CYCLIC, QN, ON DAYS 1-14
     Route: 048
  7. DEXAMETHASONE [Suspect]
     Active Substance: DEXAMETHASONE
     Indication: Acute lymphocytic leukaemia
     Dosage: 4 MG
     Route: 037
  8. ASPARAGINASE ERWINIA CHRYSANTHEMI [Suspect]
     Active Substance: ASPARAGINASE ERWINIA CHRYSANTHEMI
     Indication: Acute lymphocytic leukaemia
     Dosage: 10000 IU (20000 IU/M2), CYCLIC, D2, D4, D6, D8, D10 AND D12
  9. TROPISETRON [Concomitant]
     Active Substance: TROPISETRON
     Indication: Prophylaxis of nausea and vomiting
     Dosage: UNK

REACTIONS (6)
  - Myelosuppression [Recovering/Resolving]
  - White blood cell count decreased [Recovering/Resolving]
  - Granulocyte count decreased [Recovering/Resolving]
  - Red blood cell count decreased [Recovering/Resolving]
  - Platelet count decreased [Recovering/Resolving]
  - Liver injury [Recovering/Resolving]

NARRATIVE: CASE EVENT DATE: 20230311
